FAERS Safety Report 7897213-3 (Version None)
Quarter: 2011Q4

REPORT INFORMATION
  Report Type: 
  Country: None (occurrence: None)
  Receive Date: 20111107
  Receipt Date: 20111031
  Transmission Date: 20120403
  Serious: Yes (Other)
  Sender: FDA-Public Use
  Company Number: US-AMGEN-USASP2011045884

PATIENT
  Sex: Female

DRUGS (3)
  1. CYCLOSPORINE [Concomitant]
  2. EPOETIN ALFA [Suspect]
     Indication: PRODUCT USED FOR UNKNOWN INDICATION
     Dosage: UNK
  3. PREDNISONE [Concomitant]

REACTIONS (3)
  - TRANSPLANT REJECTION [None]
  - APLASIA PURE RED CELL [None]
  - T-LYMPHOCYTE COUNT ABNORMAL [None]
